FAERS Safety Report 13983144 (Version 3)
Quarter: 2017Q4

REPORT INFORMATION
  Report Type: Report from Study
  Country: US (occurrence: US)
  Receive Date: 20170918
  Receipt Date: 20171212
  Transmission Date: 20180321
  Serious: Yes (Hospitalization)
  Sender: FDA-Public Use
  Company Number: US-JNJFOC-20170915294

PATIENT
  Age: 75 Year
  Sex: Male

DRUGS (15)
  1. MICARDIS [Concomitant]
     Active Substance: TELMISARTAN
  2. FLONASE [Concomitant]
     Active Substance: FLUTICASONE PROPIONATE
  3. IMBRUVICA [Suspect]
     Active Substance: IBRUTINIB
     Indication: CHRONIC LYMPHOCYTIC LEUKAEMIA
     Route: 048
     Dates: start: 20170523
  4. LASIX [Concomitant]
     Active Substance: FUROSEMIDE
  5. COLACE [Concomitant]
     Active Substance: DOCUSATE SODIUM
  6. ZYLOPRIM [Concomitant]
     Active Substance: ALLOPURINOL
  7. CYANOCOBALAMIN. [Concomitant]
     Active Substance: CYANOCOBALAMIN
  8. PREDNISONE. [Concomitant]
     Active Substance: PREDNISONE
  9. MAGNESIUM [Concomitant]
     Active Substance: MAGNESIUM
  10. PROVENTIL [Concomitant]
     Active Substance: ALBUTEROL
  11. IMBRUVICA [Suspect]
     Active Substance: IBRUTINIB
     Indication: CHRONIC LYMPHOCYTIC LEUKAEMIA
     Route: 048
     Dates: start: 20170525, end: 2017
  12. K-DUR [Concomitant]
     Active Substance: POTASSIUM CHLORIDE
  13. UROXATRAL [Concomitant]
     Active Substance: ALFUZOSIN HYDROCHLORIDE
  14. ACYCLOVIR. [Concomitant]
     Active Substance: ACYCLOVIR
  15. FOLIC ACID. [Concomitant]
     Active Substance: FOLIC ACID

REACTIONS (2)
  - Atrial fibrillation [Recovered/Resolved]
  - Pulmonary oedema [Recovered/Resolved]

NARRATIVE: CASE EVENT DATE: 20170818
